FAERS Safety Report 8421715-4 (Version None)
Quarter: 2012Q2

REPORT INFORMATION
  Report Type: 
  Country: None (occurrence: None)
  Receive Date: 20120608
  Receipt Date: 20120530
  Transmission Date: 20120825
  Serious: Yes (Other)
  Sender: FDA-Public Use
  Company Number: GB-ASTRAZENECA-2012SE33809

PATIENT
  Age: 39 Year
  Sex: Female

DRUGS (4)
  1. QUETIAPINE FUMARATE [Suspect]
     Dosage: 250 MG AT NIGHT AND 50 MG IN THE MORNING
     Route: 048
  2. QUETIAPINE FUMARATE [Suspect]
     Indication: SCHIZOPHRENIA
     Route: 048
     Dates: start: 20010101
  3. QUETIAPINE FUMARATE [Suspect]
     Route: 048
  4. QUETIAPINE FUMARATE [Suspect]
     Dosage: 200 MG AT NIGHT AND 100  MG IN THE MORNING
     Route: 048

REACTIONS (3)
  - ASHERMAN'S SYNDROME [None]
  - MATERNAL EXPOSURE DURING PREGNANCY [None]
  - BETA HAEMOLYTIC STREPTOCOCCAL INFECTION [None]
